FAERS Safety Report 10477994 (Version 1)
Quarter: 2014Q3

REPORT INFORMATION
  Report Type: Spontaneous
  Country: US (occurrence: US)
  Receive Date: 20140926
  Receipt Date: 20140926
  Transmission Date: 20150326
  Serious: No
  Sender: FDA-Public Use
  Company Number: US-MALLINCKRODT-T201304517

PATIENT
  Sex: Female

DRUGS (2)
  1. ULTRA-TECHNEKOW DTE GENERATOR [Suspect]
     Active Substance: TECHNETIUM TC-99M
     Indication: SCAN MYOCARDIAL PERFUSION
     Dosage: 10.3 / 30.1, SINGLE
     Route: 042
     Dates: start: 20130806, end: 20130806
  2. KIT FOR THE PREPARATION OF TECHNETIUM (TC-99M) SESTAMIBI INJECTION [Suspect]
     Active Substance: TECHNETIUM TC-99M
     Indication: SCAN MYOCARDIAL PERFUSION
     Dosage: UNK
     Route: 042
     Dates: start: 20130806, end: 20130806

REACTIONS (2)
  - Oral mucosal erythema [Recovered/Resolved]
  - Oral pruritus [Recovered/Resolved]

NARRATIVE: CASE EVENT DATE: 20130806
